FAERS Safety Report 17203068 (Version 1)
Quarter: 2019Q4

REPORT INFORMATION
  Report Type: Report from Study
  Country: RU (occurrence: RU)
  Receive Date: 20191226
  Receipt Date: 20191226
  Transmission Date: 20200122
  Serious: Yes (Other)
  Sender: FDA-Public Use
  Company Number: PHHY2018RU202676

PATIENT
  Age: 36 Year
  Sex: Male

DRUGS (1)
  1. TASIGNA [Suspect]
     Active Substance: NILOTINIB
     Indication: PRODUCT USED FOR UNKNOWN INDICATION
     Route: 065

REACTIONS (16)
  - Atrial fibrillation [Unknown]
  - Myocardial infarction [Unknown]
  - Arrhythmia [Unknown]
  - QRS axis abnormal [Unknown]
  - Tachycardia [Unknown]
  - Supraventricular extrasystoles [Unknown]
  - Bundle branch block bilateral [Unknown]
  - Atrioventricular block complete [Unknown]
  - Bradycardia [Unknown]
  - High density lipoprotein decreased [Unknown]
  - Atrial flutter [Unknown]
  - Electrocardiogram QT shortened [Unknown]
  - Blood glucose increased [Unknown]
  - Blood triglycerides increased [Unknown]
  - Sinus rhythm [Unknown]
  - Wolff-Parkinson-White syndrome [Unknown]

NARRATIVE: CASE EVENT DATE: 20181206
